FAERS Safety Report 5627787-4 (Version None)
Quarter: 2008Q1

REPORT INFORMATION
  Report Type: 
  Country: None (occurrence: None)
  Receive Date: 20080215
  Receipt Date: 20080212
  Transmission Date: 20080703
  Serious: Yes (Hospitalization, Other)
  Sender: FDA-Public Use
  Company Number: B0506458A

PATIENT
  Sex: Female
  Weight: 70.7 kg

DRUGS (1)
  1. TOPOTECAN [Suspect]
     Dosage: 1.75MG PER DAY
     Route: 042
     Dates: start: 20070828, end: 20070901

REACTIONS (3)
  - ENDOPHTHALMITIS [None]
  - PAIN [None]
  - PSEUDOPHAKIA [None]
